FAERS Safety Report 8964416 (Version 1)
Quarter: 2012Q4

REPORT INFORMATION
  Report Type: 
  Country: US (occurrence: US)
  Receive Date: 20121214
  Receipt Date: 20121214
  Transmission Date: 20130627
  Serious: No
  Sender: FDA-Public Use
  Company Number: US-GLAXOSMITHKLINE-A0985264A

PATIENT
  Age: 82 Year
  Sex: Male

DRUGS (12)
  1. AVODART [Suspect]
     Indication: PROSTATIC DISORDER
     Dosage: 1CAP Per day
     Route: 048
     Dates: start: 20120607
  2. FUROSEMIDE [Concomitant]
  3. ASPIRIN [Concomitant]
  4. DIGOXIN [Concomitant]
  5. CLONAZEPAM [Concomitant]
  6. MIRTAZAPINE [Concomitant]
  7. TAMSULOSIN HYDROCHLORIDE [Concomitant]
  8. ATENOLOL [Concomitant]
  9. LOSARTAN [Concomitant]
  10. OMEPRAZOLE [Concomitant]
  11. ISOSORBIDE MONONITRATE [Concomitant]
  12. LEVOTHYROXINE [Concomitant]

REACTIONS (2)
  - Skin exfoliation [Not Recovered/Not Resolved]
  - Erythema [Unknown]
